FAERS Safety Report 7437724-8 (Version None)
Quarter: 2011Q2

REPORT INFORMATION
  Report Type: 
  Country: None (occurrence: None)
  Receive Date: 20110426
  Receipt Date: 20110418
  Transmission Date: 20111010
  Serious: Yes (Hospitalization)
  Sender: FDA-Public Use
  Company Number: JP-B.I. PHARMACEUTICALS,INC./RIDGEFIELD-2011-BP-02189NB

PATIENT
  Sex: Female
  Weight: 46 kg

DRUGS (7)
  1. KENTAN [Concomitant]
     Dosage: 60 MG
     Route: 048
  2. AMLODIPINE [Concomitant]
     Dosage: 5 MG
     Route: 048
  3. DOGMATYL [Concomitant]
     Dosage: 100 MG
     Route: 048
  4. PLAVIX [Concomitant]
     Dosage: 75 MG
     Route: 048
  5. CATAPRES [Suspect]
     Indication: ESSENTIAL HYPERTENSION
     Dosage: 225 MCG
     Route: 048
     Dates: start: 20110206
  6. ERISPAN [Concomitant]
     Dosage: 0.5 MG
     Route: 048
  7. ENCHININ [Concomitant]
     Dosage: 1 MG
     Route: 048

REACTIONS (3)
  - VOMITING [None]
  - NAUSEA [None]
  - TREMOR [None]
